FAERS Safety Report 4859749-9 (Version None)
Quarter: 2005Q4

REPORT INFORMATION
  Report Type: 
  Country: None (occurrence: None)
  Receive Date: 20051215
  Receipt Date: 20051205
  Transmission Date: 20060501
  Serious: Yes (Hospitalization, Other)
  Sender: FDA-Public Use
  Company Number: CHPA2003US02317

PATIENT
  Age: 35 Year
  Sex: Female

DRUGS (5)
  1. EX-LAX LAXATIVE (NCH) [Suspect]
     Indication: WEIGHT CONTROL
     Dosage: ORAL
     Route: 048
     Dates: start: 19880101
  2. DULCOLAX (BISACODY) [Suspect]
     Indication: WEIGHT CONTROL
     Dosage: ORAL
     Route: 048
     Dates: start: 19880101
  3. FEEN-A-MINT (PHENOLPHTHALEIN) [Suspect]
     Indication: WEIGHT CONTROL
     Dosage: ORAL
     Route: 048
     Dates: start: 19880101
  4. CORRECTOL [Suspect]
     Indication: WEIGHT CONTROL
     Dosage: ORAL
     Route: 048
     Dates: start: 19880101
  5. ^EQUATE (LAXATIVE (EQUATE LAXATIVE) [Suspect]
     Dosage: Q AB, QD

REACTIONS (23)
  - ABDOMINAL DISTENSION [None]
  - ABDOMINAL PAIN LOWER [None]
  - CERVICAL CYST [None]
  - COITAL BLEEDING [None]
  - CONSTIPATION [None]
  - DIARRHOEA [None]
  - DRUG DEPENDENCE [None]
  - DRUG INEFFECTIVE [None]
  - ECONOMIC PROBLEM [None]
  - EMOTIONAL DISORDER [None]
  - HAEMORRHOIDAL HAEMORRHAGE [None]
  - HAEMORRHOIDS [None]
  - INJURY [None]
  - INTENTIONAL DRUG MISUSE [None]
  - LAXATIVE ABUSE [None]
  - MIGRAINE [None]
  - NAUSEA [None]
  - OVARIAN CYST [None]
  - PELVIC INFLAMMATORY DISEASE [None]
  - PELVIC PAIN [None]
  - PROCTITIS [None]
  - TREATMENT NONCOMPLIANCE [None]
  - VAGINITIS BACTERIAL [None]
